FAERS Safety Report 23636337 (Version 1)
Quarter: 2024Q1

REPORT INFORMATION
  Report Type: Spontaneous
  Country: US (occurrence: None)
  Receive Date: 20240314
  Receipt Date: 20240314
  Transmission Date: 20240409
  Serious: Yes (Other)
  Sender: FDA-Public Use
  Company Number: None

PATIENT
  Age: 35 Year
  Sex: Female

DRUGS (1)
  1. PAXLOVID [Suspect]
     Active Substance: NIRMATRELVIR\RITONAVIR
     Indication: COVID-19
     Dosage: FREQUENCY : TWICE A DAY;?
     Route: 048
     Dates: start: 20240312, end: 20240314

REACTIONS (6)
  - Decreased appetite [None]
  - Chromaturia [None]
  - Yellow skin [None]
  - Ocular icterus [None]
  - Abdominal pain upper [None]
  - Pruritus [None]

NARRATIVE: CASE EVENT DATE: 20240313
